FAERS Safety Report 24947570 (Version 2)
Quarter: 2025Q1

REPORT INFORMATION
  Report Type: Spontaneous
  Country: CN (occurrence: CN)
  Receive Date: 20250210
  Receipt Date: 20250317
  Transmission Date: 20250409
  Serious: Yes (Other)
  Sender: HETERO
  Company Number: CN-HETERO-HET2025CN00621

PATIENT
  Age: 61 Year
  Sex: Male
  Weight: 71 kg

DRUGS (2)
  1. OSELTAMIVIR [Suspect]
     Active Substance: OSELTAMIVIR
     Indication: Influenza A virus test positive
     Route: 048
     Dates: start: 20241228, end: 20250101
  2. CEFOPERAZONE SODIUM\SULBACTAM SODIUM [Suspect]
     Active Substance: CEFOPERAZONE SODIUM\SULBACTAM SODIUM
     Indication: Diabetic gangrene
     Route: 042
     Dates: start: 20241225, end: 20250101

REACTIONS (7)
  - Epilepsy [Not Recovered/Not Resolved]
  - Cerebral infarction [Not Recovered/Not Resolved]
  - Loss of consciousness [Unknown]
  - Blood pressure systolic increased [Unknown]
  - Pupillary reflex impaired [Unknown]
  - Uraemic encephalopathy [Unknown]
  - Salivary hypersecretion [Unknown]

NARRATIVE: CASE EVENT DATE: 20250101
